FAERS Safety Report 5668102-X (Version None)
Quarter: 2008Q1

REPORT INFORMATION
  Report Type: 
  Country: None (occurrence: None)
  Receive Date: 20080315
  Receipt Date: 20080213
  Transmission Date: 20080703
  Serious: No
  Sender: FDA-Public Use
  Company Number: US-ABBOTT-08P-163-0438324-00

PATIENT
  Sex: Female
  Weight: 59.02 kg

DRUGS (4)
  1. HUMIRA [Suspect]
     Indication: CROHN'S DISEASE
     Route: 058
     Dates: start: 20070801
  2. LOMOTIL [Concomitant]
     Indication: DIARRHOEA
     Route: 048
     Dates: start: 20050101
  3. PROPACET 100 [Concomitant]
     Indication: PAIN
     Dosage: N-100MG
     Route: 048
     Dates: start: 20050101
  4. LORAZEPAM [Concomitant]
     Indication: PAIN
     Route: 048
     Dates: start: 20050101

REACTIONS (3)
  - DIARRHOEA [None]
  - DRUG INEFFECTIVE [None]
  - SWELLING [None]
